FAERS Safety Report 5400031-9 (Version None)
Quarter: 2007Q3

REPORT INFORMATION
  Report Type: 
  Country: None (occurrence: None)
  Receive Date: 20070725
  Receipt Date: 20070627
  Transmission Date: 20080115
  Serious: Yes (Other)
  Sender: FDA-Public Use
  Company Number: ENC200700092

PATIENT
  Age: 75 Year
  Sex: Male

DRUGS (5)
  1. ARGATROBAN [Suspect]
     Indication: CEREBRAL THROMBOSIS
     Dosage: 60 MG, QD, INTRAVENOUS
     Route: 042
     Dates: start: 20070310
  2. GRTPA(ALTEPLASE) 24 MU [Suspect]
     Indication: CEREBRAL THROMBOSIS
     Dosage: 24 MU, QD, INTRAVENOUS
     Route: 042
     Dates: start: 20070310, end: 20070310
  3. HEPARIN SODIUM [Suspect]
     Dosage: INTRAVENOUS
     Route: 042
  4. ASPIRIN [Concomitant]
  5. FANALDINE [Concomitant]

REACTIONS (5)
  - BLOOD PRESSURE DIASTOLIC INCREASED [None]
  - HAEMORRHAGIC CEREBRAL INFARCTION [None]
  - HEART RATE DECREASED [None]
  - PLATELET COUNT DECREASED [None]
  - SUBARACHNOID HAEMORRHAGE [None]
